FAERS Safety Report 10489993 (Version 2)
Quarter: 2014Q4

REPORT INFORMATION
  Report Type: Spontaneous
  Country: FR (occurrence: FR)
  Receive Date: 20141002
  Receipt Date: 20141002
  Transmission Date: 20150528
  Serious: Yes (Other)
  Sender: FDA-Public Use
  Company Number: FR-TEVA-507811ISR

PATIENT
  Age: 78 Year
  Sex: Female
  Weight: 65 kg

DRUGS (4)
  1. CARDENSIEL 2.5MG [Concomitant]
     Dosage: STARTED SEVERAL YEARS AGO
  2. FLECAINIDE TEVA LP 150MG [Suspect]
     Active Substance: FLECAINIDE
     Dosage: STARTED ON 20 OR 22-AUG-2014
     Dates: start: 20140823, end: 20140825
  3. TAREG 40MG [Concomitant]
     Dosage: STARTED SEVERAL YEARS AGO
  4. PREVISCAN 20MG [Concomitant]
     Active Substance: FLUINDIONE
     Dosage: STARTED SEVERAL YEARS AGO

REACTIONS (5)
  - Product substitution issue [None]
  - Product substitution issue [Recovered/Resolved]
  - Vertigo [Recovered/Resolved]
  - Product quality issue [None]
  - International normalised ratio increased [Recovered/Resolved]

NARRATIVE: CASE EVENT DATE: 20140825
